FAERS Safety Report 18899849 (Version 10)
Quarter: 2021Q4

REPORT INFORMATION
  Report Type: Report from Study
  Country: CZ (occurrence: CZ)
  Receive Date: 20210216
  Receipt Date: 20211210
  Transmission Date: 20220303
  Serious: Yes (Hospitalization, Other)
  Sender: FDA-Public Use
  Company Number: NVSC2021CZ031196

PATIENT
  Age: 63 Year
  Sex: Female
  Weight: 76 kg

DRUGS (13)
  1. ISCALIMAB [Suspect]
     Active Substance: ISCALIMAB
     Indication: Renal transplant
     Dosage: 13.2 ML, OTHER
     Route: 042
     Dates: start: 20190618, end: 20210126
  2. SPIRONOLACTONUM [Concomitant]
     Indication: Oedema peripheral
     Dosage: UNK
     Route: 065
     Dates: start: 20200421
  3. AMBROXOL [Concomitant]
     Active Substance: AMBROXOL
     Indication: Cough
     Dosage: UNK
     Route: 065
     Dates: start: 20200421
  4. CEFOTAXIMUM [Concomitant]
     Indication: Urinary tract infection
     Dosage: UNK
     Route: 065
     Dates: start: 20210206, end: 20210210
  5. CEFOTAXIMUM [Concomitant]
     Indication: Cytomegalovirus infection
     Dosage: UNK
     Route: 065
     Dates: start: 20210211, end: 20210211
  6. CEFOTAXIMUM [Concomitant]
     Dosage: UNK
     Route: 065
     Dates: start: 20210212, end: 20210212
  7. METOPROLOL [Concomitant]
     Active Substance: METOPROLOL
     Indication: Hypertension
     Dosage: UNK
     Route: 065
     Dates: start: 20190625, end: 20210207
  8. URAPIDIL [Concomitant]
     Active Substance: URAPIDIL
     Indication: Hypertension
     Dosage: UNK
     Route: 065
     Dates: start: 20190627
  9. CHOLECALCIFEROL [Concomitant]
     Active Substance: CHOLECALCIFEROL
     Indication: Hyperparathyroidism
     Dosage: UNK
     Route: 065
     Dates: start: 20200908, end: 20210205
  10. VALGANCICLOVIRUM [Concomitant]
     Indication: Urinary tract infection
     Dosage: UNK
     Route: 065
     Dates: start: 20210126, end: 20210207
  11. VALGANCICLOVIRUM [Concomitant]
     Indication: Cytomegalovirus infection
     Dosage: UNK
     Route: 065
     Dates: start: 20210212, end: 20210312
  12. PREDNISONE [Concomitant]
     Active Substance: PREDNISONE
     Indication: Prophylaxis against transplant rejection
     Dosage: UNK
     Route: 065
     Dates: start: 20210203, end: 20210206
  13. EZETIMIBE [Concomitant]
     Active Substance: EZETIMIBE
     Indication: Dyslipidaemia
     Dosage: UNK
     Route: 065
     Dates: start: 20191203, end: 20210205

REACTIONS (1)
  - Urinary tract infection [Recovered/Resolved with Sequelae]

NARRATIVE: CASE EVENT DATE: 20210204
